FAERS Safety Report 23206391 (Version 1)
Quarter: 2023Q4

REPORT INFORMATION
  Report Type: Other
  Country: US (occurrence: US)
  Receive Date: 20231120
  Receipt Date: 20231120
  Transmission Date: 20240110
  Serious: No
  Sender: FDA-Public Use
  Company Number: US-UROVANT SCIENCES GMBH-202306-URV-001199

PATIENT
  Sex: Female

DRUGS (1)
  1. GEMTESA [Suspect]
     Active Substance: VIBEGRON
     Indication: Urinary incontinence
     Dosage: 75 MG, QD
     Route: 048
     Dates: start: 202306, end: 202306

REACTIONS (8)
  - Joint swelling [Recovering/Resolving]
  - Swelling [Recovering/Resolving]
  - Abdominal distension [Recovering/Resolving]
  - Peripheral swelling [Recovering/Resolving]
  - Blister [Unknown]
  - Lymphoedema [Recovering/Resolving]
  - Rash [Unknown]
  - Drug ineffective [Unknown]
